FAERS Safety Report 9837223 (Version 1)
Quarter: 2013Q4

REPORT INFORMATION
  Report Type: Spontaneous
  Country: US (occurrence: None)
  Receive Date: 20131121
  Receipt Date: 20131121
  Transmission Date: 20140711
  Serious: Yes (Hospitalization)
  Sender: FDA-Public Use
  Company Number: AUR-APL-2013-01840

PATIENT
  Age: 47 Year
  Sex: Male
  Weight: 76.66 kg

DRUGS (3)
  1. MELOXICAM (MELOXICAM) [Suspect]
     Indication: ARTHRALGIA
     Dosage: (15 MG, 2 IN 1 D)
     Dates: start: 20121213, end: 20130116
  2. ZOLOFT (SERTRALINE) [Concomitant]
  3. ZOCOR (SIMVASTATIN) [Concomitant]

REACTIONS (3)
  - Haemorrhage [None]
  - Gastric ulcer [None]
  - Abdominal pain upper [None]
